FAERS Safety Report 6880537-6 (Version None)
Quarter: 2010Q3

REPORT INFORMATION
  Report Type: 
  Country: None (occurrence: None)
  Receive Date: 20100728
  Receipt Date: 20100716
  Transmission Date: 20110219
  Serious: Yes (Other)
  Sender: FDA-Public Use
  Company Number: US-GENZYME-THYM-1001682

PATIENT
  Sex: Male

DRUGS (6)
  1. THYMOGLOBULIN [Suspect]
     Indication: PROPHYLAXIS AGAINST TRANSPLANT REJECTION
     Route: 042
  2. ZENAPAX [Concomitant]
     Indication: IMMUNOSUPPRESSION
     Route: 065
  3. RITUXIMAB [Concomitant]
     Indication: IMMUNOSUPPRESSION
     Route: 065
  4. TACROLIMUS [Concomitant]
     Indication: IMMUNOSUPPRESSION
     Route: 065
  5. MYCOPHENOLATE MOFETIL [Concomitant]
     Indication: IMMUNOSUPPRESSION
     Route: 065
  6. CORTICOSTEROIDS [Concomitant]
     Indication: IMMUNOSUPPRESSION
     Route: 065

REACTIONS (3)
  - GRAFT LOSS [None]
  - HYPERGLYCAEMIA [None]
  - PANCREAS TRANSPLANT REJECTION [None]
